FAERS Safety Report 4517710-8 (Version None)
Quarter: 2004Q4

REPORT INFORMATION
  Report Type: 
  Country: None (occurrence: None)
  Receive Date: 20041203
  Receipt Date: 20041125
  Transmission Date: 20050328
  Serious: Yes (Other)
  Sender: FDA-Public Use
  Company Number: PHBS2004JP15854

PATIENT
  Age: 10 Year
  Sex: Female

DRUGS (3)
  1. CYCLOSPORINE [Suspect]
     Route: 065
  2. CYCLOPHOSPHAMIDE [Concomitant]
  3. IRRADIATION [Concomitant]

REACTIONS (1)
  - OBLITERATIVE BRONCHIOLITIS [None]
